FAERS Safety Report 7006879-1 (Version None)
Quarter: 2010Q3

REPORT INFORMATION
  Report Type: 
  Country: None (occurrence: None)
  Receive Date: 20100922
  Receipt Date: 20091005
  Transmission Date: 20110219
  Serious: Yes (Death, Hospitalization)
  Sender: FDA-Public Use
  Company Number: GB-SHIRE-CQT2-2009-00028

PATIENT

DRUGS (9)
  1. ANAGRELIDE HCL [Suspect]
     Indication: ESSENTIAL THROMBOCYTHAEMIA
     Dosage: 2.5 MG TOTAL DAILY DOSES, DIVIDED INTO TWO DOSES
     Route: 048
     Dates: start: 20090808
  2. ANAGRELIDE HCL [Suspect]
     Dosage: .5 MG, 2X/DAY:BID
     Route: 048
     Dates: start: 20081121, end: 20090107
  3. ANAGRELIDE HCL [Suspect]
     Dosage: .5 MG, 2X/DAY:BID
     Route: 048
     Dates: start: 20090220, end: 20090807
  4. HYDROXYUREA [Suspect]
     Indication: ESSENTIAL THROMBOCYTHAEMIA
     Dosage: 1000 MG, 1X/DAY:QD
     Route: 048
     Dates: start: 20090902
  5. HYDROXYUREA [Suspect]
     Dosage: 500 MG, 1X/DAY:QD
     Route: 048
     Dates: start: 20060628, end: 20080401
  6. HYDROXYUREA [Suspect]
     Dosage: 500 MG, 1X/DAY:QD
     Route: 048
     Dates: start: 20080430
  7. FELODIPINE [Concomitant]
     Indication: HYPERTENSION
     Dosage: 5 MG, 1X/DAY:QD
     Route: 048
     Dates: start: 20010101
  8. BENDROFLUAZIDE [Concomitant]
     Indication: HYPERTENSION
     Dosage: 2.5 MG, 1X/DAY:QD
     Route: 048
     Dates: start: 20010101
  9. OMEPRAZOLE [Concomitant]
     Indication: PROPHYLAXIS
     Dosage: 20 MG, 1X/DAY:QD
     Route: 048
     Dates: start: 20060411

REACTIONS (3)
  - ANGINA PECTORIS [None]
  - CARDIAC ARREST [None]
  - EPISTAXIS [None]
